FAERS Safety Report 8560842-8 (Version None)
Quarter: 2012Q3

REPORT INFORMATION
  Report Type: 
  Country: None (occurrence: None)
  Receive Date: 20120727
  Receipt Date: 20120727
  Transmission Date: 20120928
  Serious: Yes (Hospitalization)
  Sender: FDA-Public Use
  Company Number: None

PATIENT
  Age: 66 Year
  Sex: Male
  Weight: 80 kg

DRUGS (4)
  1. ZYRTEC [Concomitant]
  2. LISINOPRIL [Suspect]
     Indication: HYPERTENSION
     Dosage: 10MG DAILY PO CHRONIC
     Route: 048
  3. CIPROFLOXACIN HCL [Concomitant]
  4. PHENAZOPYRIDINE HCL TAB [Concomitant]

REACTIONS (2)
  - ANGIOEDEMA [None]
  - ATRIAL FIBRILLATION [None]
